FAERS Safety Report 5740559-5 (Version None)
Quarter: 2008Q2

REPORT INFORMATION
  Report Type: 
  Country: None (occurrence: None)
  Receive Date: 20080516
  Receipt Date: 20080506
  Transmission Date: 20081010
  Serious: Yes (Other)
  Sender: FDA-Public Use
  Company Number: GB-JNJFOC-20080501388

PATIENT
  Age: 15 Year
  Sex: Female

DRUGS (3)
  1. TOPAMAX [Suspect]
     Indication: MIGRAINE
     Route: 048
  2. IBUPROFEN TABLETS [Concomitant]
     Indication: DRUG USE FOR UNKNOWN INDICATION
     Route: 048
  3. ACETAMINOPHEN [Concomitant]
     Indication: DRUG USE FOR UNKNOWN INDICATION
     Route: 048

REACTIONS (3)
  - ANOREXIA NERVOSA [None]
  - DEPRESSION [None]
  - SUICIDAL IDEATION [None]
